FAERS Safety Report 15469560 (Version 1)
Quarter: 2018Q4

REPORT INFORMATION
  Report Type: Spontaneous
  Country: GB (occurrence: GB)
  Receive Date: 20181005
  Receipt Date: 20181005
  Transmission Date: 20190205
  Serious: Yes (Disabling)
  Sender: FDA-Public Use
  Company Number: GB-PFIZER INC-2018394215

PATIENT
  Age: 30 Year
  Sex: Female
  Weight: 76.2 kg

DRUGS (1)
  1. SERTRALINE HCL [Suspect]
     Active Substance: SERTRALINE HYDROCHLORIDE
     Indication: ANXIETY
     Dosage: 10 MG, UNK
     Route: 048
     Dates: start: 201703, end: 201704

REACTIONS (6)
  - Emotional distress [Recovering/Resolving]
  - Suicidal ideation [Recovered/Resolved]
  - Tachyphrenia [Recovered/Resolved with Sequelae]
  - Poor quality sleep [Recovered/Resolved with Sequelae]
  - Restlessness [Recovered/Resolved]
  - Post-traumatic stress disorder [Recovering/Resolving]

NARRATIVE: CASE EVENT DATE: 201803
